FAERS Safety Report 14677181 (Version 1)
Quarter: 2018Q1

REPORT INFORMATION
  Report Type: Spontaneous
  Country: US (occurrence: US)
  Receive Date: 20180323
  Receipt Date: 20180323
  Transmission Date: 20180509
  Serious: No
  Sender: FDA-Public Use
  Company Number: None

PATIENT
  Age: 90 Year
  Sex: Male

DRUGS (1)
  1. PYRIDOSTIGMINE [Suspect]
     Active Substance: PYRIDOSTIGMINE
     Dosage: 60 MG FIVES TIMES PER DA; ORAL?
     Route: 048
     Dates: start: 20180202, end: 20180302

REACTIONS (2)
  - Fall [None]
  - Muscle disorder [None]

NARRATIVE: CASE EVENT DATE: 20180302
